FAERS Safety Report 24389716 (Version 1)
Quarter: 2024Q4

REPORT INFORMATION
  Report Type: Spontaneous
  Country: US (occurrence: US)
  Receive Date: 20241003
  Receipt Date: 20241003
  Transmission Date: 20250115
  Serious: No
  Sender: STRIDES
  Company Number: US-STRIDES ARCOLAB LIMITED-2024SP005189

PATIENT
  Age: 65 Year
  Sex: Male

DRUGS (5)
  1. DOXORUBICIN [Suspect]
     Active Substance: DOXORUBICIN
     Indication: Follicular lymphoma
     Dosage: UNK, (R-CHOP REGIMEN)
     Route: 065
     Dates: start: 2009
  2. PREDNISOLONE [Suspect]
     Active Substance: PREDNISOLONE
     Indication: Follicular lymphoma
     Dosage: UNK, (R-CHOP REGIMEN)
     Route: 065
     Dates: start: 2009
  3. RITUXIMAB [Suspect]
     Active Substance: RITUXIMAB
     Indication: Follicular lymphoma
     Dosage: UNK, (R-CHOP REGIMEN)
     Route: 065
     Dates: start: 2009
  4. CYCLOPHOSPHAMIDE [Suspect]
     Active Substance: CYCLOPHOSPHAMIDE
     Indication: Follicular lymphoma
     Dosage: UNK, (R-CHOP REGIMEN)
     Route: 065
     Dates: start: 2009
  5. VINCRISTINE [Suspect]
     Active Substance: VINCRISTINE
     Indication: Follicular lymphoma
     Dosage: UNK, (R-CHOP REGIMEN)
     Route: 065
     Dates: start: 2009

REACTIONS (3)
  - Mononuclear cell count decreased [Unknown]
  - Nucleic acid test [Unknown]
  - Laboratory test abnormal [Unknown]
